FAERS Safety Report 15757465 (Version 4)
Quarter: 2019Q2

REPORT INFORMATION
  Report Type: Spontaneous
  Country: CN (occurrence: CN)
  Receive Date: 20181224
  Receipt Date: 20190429
  Transmission Date: 20190711
  Serious: Yes (Hospitalization, Other)
  Sender: FDA-Public Use
  Company Number: CN-GILEAD-2018-0381726

PATIENT
  Age: 47 Year
  Sex: Male

DRUGS (2)
  1. ADEFOVIR DIPIVOXIL. [Suspect]
     Active Substance: ADEFOVIR DIPIVOXIL
     Indication: HEPATITIS B
     Dosage: 10 MG, QD
     Route: 065
     Dates: start: 200808
  2. POTASSIUM [Concomitant]
     Active Substance: POTASSIUM

REACTIONS (15)
  - Fanconi syndrome acquired [Recovered/Resolved]
  - Blood uric acid decreased [Recovered/Resolved]
  - Product administration error [Recovered/Resolved]
  - Muscular weakness [Recovered/Resolved]
  - Blood alkaline phosphatase increased [Recovered/Resolved]
  - Hypophosphataemic osteomalacia [Recovered/Resolved]
  - Osteoporosis [Recovered/Resolved]
  - Blood phosphorus decreased [Recovered/Resolved]
  - Blood creatinine increased [Recovered/Resolved]
  - Glomerular filtration rate decreased [Recovered/Resolved]
  - Thyroid mass [Recovered/Resolved]
  - Gait disturbance [Recovered/Resolved]
  - Chondropathy [Recovered/Resolved]
  - Femur fracture [Recovered/Resolved]
  - Chest pain [Recovered/Resolved]
